FAERS Safety Report 18367845 (Version 2)
Quarter: 2021Q1

REPORT INFORMATION
  Report Type: Spontaneous
  Country: US (occurrence: US)
  Receive Date: 20201009
  Receipt Date: 20210114
  Transmission Date: 20210419
  Serious: Yes (Other)
  Sender: FDA-Public Use
  Company Number: US-JNJFOC-20200954010

PATIENT
  Age: 45 Year
  Sex: Female
  Weight: 52.21 kg

DRUGS (3)
  1. REMICADE [Suspect]
     Active Substance: INFLIXIMAB
     Indication: CROHN^S DISEASE
     Route: 042
  2. PREDNISONE. [Concomitant]
     Active Substance: PREDNISONE
  3. IRON [Concomitant]
     Active Substance: IRON

REACTIONS (4)
  - Weight decreased [Unknown]
  - Drug hypersensitivity [Unknown]
  - Infusion related reaction [Unknown]
  - Haematochezia [Not Recovered/Not Resolved]

NARRATIVE: CASE EVENT DATE: 202007
